FAERS Safety Report 5481632-9 (Version None)
Quarter: 2007Q4

REPORT INFORMATION
  Report Type: 
  Country: None (occurrence: None)
  Receive Date: 20071004
  Receipt Date: 20070927
  Transmission Date: 20080405
  Serious: Yes (Death, Hospitalization)
  Sender: FDA-Public Use
  Company Number: 2007SP019614

PATIENT
  Age: 28 Year
  Sex: Female

DRUGS (1)
  1. TEMODAR [Suspect]
     Indication: GLIOBLASTOMA MULTIFORME
     Dosage: 200 MG; PO
     Route: 048
     Dates: start: 20070827

REACTIONS (3)
  - ABDOMINAL MASS [None]
  - GASTROINTESTINAL HAEMORRHAGE [None]
  - SEPSIS [None]
